FAERS Safety Report 8090680-4 (Version None)
Quarter: 2012Q1

REPORT INFORMATION
  Report Type: 
  Country: None (occurrence: None)
  Receive Date: 20120129
  Receipt Date: 20111228
  Transmission Date: 20120608
  Serious: No
  Sender: FDA-Public Use
  Company Number: US-ABBOTT-11P-163-0881940-00

PATIENT
  Age: 42 Year
  Sex: Female

DRUGS (3)
  1. TACLONEX [Concomitant]
     Indication: PRODUCT USED FOR UNKNOWN INDICATION
     Dosage: HAS NOT HAD TO USE FOR A YEAR
     Route: 061
  2. HUMIRA [Suspect]
     Indication: PSORIASIS
     Dates: start: 20110701
  3. CLARITIN [Concomitant]
     Indication: SEASONAL ALLERGY

REACTIONS (9)
  - JOINT SWELLING [None]
  - MUSCULOSKELETAL PAIN [None]
  - LUPUS-LIKE SYNDROME [None]
  - PAPULE [None]
  - GAIT DISTURBANCE [None]
  - ARTHRALGIA [None]
  - URTICARIA [None]
  - NECK PAIN [None]
  - PAIN IN EXTREMITY [None]
